FAERS Safety Report 13655761 (Version 1)
Quarter: 2017Q2

REPORT INFORMATION
  Report Type: Spontaneous
  Country: US (occurrence: US)
  Receive Date: 20170614
  Receipt Date: 20170614
  Transmission Date: 20170830
  Serious: Yes (Life-Threatening, Disabling, Other)
  Sender: FDA-Public Use
  Company Number: None

PATIENT
  Age: 6 Year
  Sex: Male
  Weight: 22.5 kg

DRUGS (4)
  1. ZYRTEC [Concomitant]
     Active Substance: CETIRIZINE HYDROCHLORIDE
  2. ANIMAL PARADE VITAMINS [Concomitant]
  3. ENSURE [Concomitant]
     Active Substance: AMINO ACIDS\DEXTROSE\ELECTROLYTES NOS\SOYBEAN OIL\VITAMINS
  4. FLONASE [Suspect]
     Active Substance: FLUTICASONE PROPIONATE
     Indication: RHINITIS
     Route: 055

REACTIONS (1)
  - Immune thrombocytopenic purpura [None]

NARRATIVE: CASE EVENT DATE: 20160601
